FAERS Safety Report 5094817-0 (Version None)
Quarter: 2006Q3

REPORT INFORMATION
  Report Type: 
  Country: None (occurrence: None)
  Receive Date: 20060830
  Receipt Date: 20060830
  Transmission Date: 20061208
  Serious: No
  Sender: FDA-Public Use
  Company Number: None

PATIENT
  Sex: Female
  Weight: 61.6 kg

DRUGS (2)
  1. CYCLOPHOSPHAMIDE [Suspect]
     Dosage: 1008 MG  SEE IMAGE
     Dates: end: 20060828
  2. DOXORUBICIN HYDROCHLORIDE [Suspect]
     Dosage: 101 MG   SEE IMAGE
     Dates: end: 20060828

REACTIONS (1)
  - NEUTROPHIL COUNT DECREASED [None]
